FAERS Safety Report 14968684 (Version 1)
Quarter: 2018Q2

REPORT INFORMATION
  Report Type: Report from Study
  Country: None (occurrence: ES)
  Receive Date: 20180604
  Receipt Date: 20180604
  Transmission Date: 20180711
  Serious: Yes (Life-Threatening, Hospitalization)
  Sender: FDA-Public Use
  Company Number: ES-BAUSCH-BL-2018-015647

PATIENT
  Age: 30 Year
  Sex: Female

DRUGS (3)
  1. MESALAZINA [Suspect]
     Active Substance: MESALAMINE
     Indication: PRODUCT USED FOR UNKNOWN INDICATION
     Route: 048
     Dates: start: 20170714
  2. METAMIZOL [Suspect]
     Active Substance: METAMIZOLE SODIUM
     Indication: PRODUCT USED FOR UNKNOWN INDICATION
     Dosage: 2-3 COMPRESSED TO THE DAY
     Route: 048
     Dates: start: 20180211, end: 20180221
  3. MESALAZINA [Suspect]
     Active Substance: MESALAMINE
     Dosage: INCREASED
     Route: 048
     Dates: start: 20171116, end: 20180221

REACTIONS (2)
  - Septic shock [Recovered/Resolved]
  - Agranulocytosis [Recovered/Resolved]

NARRATIVE: CASE EVENT DATE: 20180221
